FAERS Safety Report 13134303 (Version 5)
Quarter: 2017Q2

REPORT INFORMATION
  Report Type: Report from Study
  Country: FR (occurrence: FR)
  Receive Date: 20170120
  Receipt Date: 20170508
  Transmission Date: 20170830
  Serious: Yes (Hospitalization, Other)
  Sender: FDA-Public Use
  Company Number: PHHO2016FR006808

PATIENT
  Age: 24 Year
  Sex: Male
  Weight: 81 kg

DRUGS (2)
  1. SMECTA [Concomitant]
     Active Substance: MONTMORILLONITE
     Indication: DIARRHOEA
     Dosage: UNK
     Route: 048
     Dates: start: 20161016
  2. PAZOPANIB [Suspect]
     Active Substance: PAZOPANIB
     Indication: DESMOID TUMOUR
     Dosage: 400 MG, BID
     Route: 048
     Dates: start: 20160223, end: 20170108

REACTIONS (7)
  - Malignant neoplasm progression [Unknown]
  - Gastrointestinal perforation [Unknown]
  - Tumour perforation [Unknown]
  - Tumour exudation [Recovered/Resolved with Sequelae]
  - Gastrointestinal haemorrhage [Recovered/Resolved with Sequelae]
  - Pulmonary embolism [Recovering/Resolving]
  - Tumour haemorrhage [Recovered/Resolved with Sequelae]

NARRATIVE: CASE EVENT DATE: 20160311
